FAERS Safety Report 6532908-5 (Version None)
Quarter: 2009Q4

REPORT INFORMATION
  Report Type: 
  Country: None (occurrence: None)
  Receive Date: 20091231
  Receipt Date: 20091224
  Transmission Date: 20100525
  Serious: Yes (Other)
  Sender: FDA-Public Use
  Company Number: A0836666A

PATIENT
  Age: 49 Year
  Sex: Male

DRUGS (2)
  1. SODIUM FLUORIDE + ISOPENTANE + SODIUM TRIPOLYPHOSPHATE TOOTH (NAFLUORI [Suspect]
     Indication: DENTAL CLEANING
     Dosage: DENTAL
     Route: 004
     Dates: start: 20091001, end: 20091201
  2. PAIN MEDICATION [Concomitant]

REACTIONS (4)
  - GINGIVAL DISORDER [None]
  - MASS [None]
  - SWOLLEN TONGUE [None]
  - TOOTH FRACTURE [None]
